FAERS Safety Report 7826327 (Version 2)
Quarter: 2014Q4

REPORT INFORMATION
  Report Type: Spontaneous
  Country: US (occurrence: US)
  Receive Date: 20110224
  Receipt Date: 20141218
  Transmission Date: 20150529
  Serious: Yes (Other)
  Sender: FDA-Public Use
  Company Number: US-ROCHE-734595

PATIENT
  Age: 24 Year
  Sex: Male
  Weight: 76.2 kg

DRUGS (1)
  1. ACCUTANE [Suspect]
     Active Substance: ISOTRETINOIN
     Indication: ACNE
     Route: 065
     Dates: start: 20050101, end: 20060101

REACTIONS (15)
  - Haemorrhoids [Unknown]
  - Constipation [Unknown]
  - Chest discomfort [Unknown]
  - Inflammatory bowel disease [Unknown]
  - Suicidal ideation [Unknown]
  - Diverticulum [Unknown]
  - Anaemia [Unknown]
  - Hypertrophic anal papilla [Unknown]
  - Insomnia [Unknown]
  - Gastrointestinal injury [Unknown]
  - Depression [Unknown]
  - Anal fissure [Unknown]
  - Crohn^s disease [Unknown]
  - Colitis ulcerative [Unknown]
  - Bipolar disorder [Unknown]

NARRATIVE: CASE EVENT DATE: 200709
